FAERS Safety Report 7094548-1 (Version None)
Quarter: 2010Q4

REPORT INFORMATION
  Report Type: 
  Country: None (occurrence: None)
  Receive Date: 20101110
  Receipt Date: 20101027
  Transmission Date: 20110411
  Serious: Yes (Hospitalization)
  Sender: FDA-Public Use
  Company Number: PHHY2010US38914

PATIENT
  Sex: Female
  Weight: 142.86 kg

DRUGS (1)
  1. TASIGNA [Suspect]
     Indication: CHRONIC MYELOID LEUKAEMIA
     Dosage: 200 MG, QD
     Route: 048
     Dates: start: 20100803, end: 20100909

REACTIONS (7)
  - BLOOD CREATININE INCREASED [None]
  - CARDIAC OPERATION [None]
  - CATHETERISATION CARDIAC [None]
  - CHEST PAIN [None]
  - MYOCARDIAL INFARCTION [None]
  - STENT PLACEMENT [None]
  - TROPONIN INCREASED [None]
